FAERS Safety Report 8220365-2 (Version None)
Quarter: 2012Q1

REPORT INFORMATION
  Report Type: 
  Country: None (occurrence: None)
  Receive Date: 20120320
  Receipt Date: 20111207
  Transmission Date: 20120608
  Serious: No
  Sender: FDA-Public Use
  Company Number: US-GLAXOSMITHKLINE-A0957131A

PATIENT
  Age: 12 Month
  Sex: Male

DRUGS (1)
  1. VUSION [Suspect]
     Indication: DERMATITIS DIAPER
     Route: 048

REACTIONS (2)
  - INCORRECT ROUTE OF DRUG ADMINISTRATION [None]
  - ACCIDENTAL EXPOSURE [None]
